FAERS Safety Report 4994104-2 (Version None)
Quarter: 2006Q2

REPORT INFORMATION
  Report Type: 
  Country: None (occurrence: None)
  Receive Date: 20060505
  Receipt Date: 20060426
  Transmission Date: 20061013
  Serious: Yes (Death)
  Sender: FDA-Public Use
  Company Number: FR-ROCHE-446054

PATIENT
  Age: 77 Year
  Sex: Female

DRUGS (10)
  1. RIVOTRIL [Suspect]
     Indication: DRUG USE FOR UNKNOWN INDICATION
     Dosage: 3 DOSES TAKEN TWICE DAILY.
     Route: 048
  2. OGAST [Suspect]
     Indication: DRUG USE FOR UNKNOWN INDICATION
     Route: 048
     Dates: end: 20060115
  3. SERESTA [Suspect]
     Indication: DRUG USE FOR UNKNOWN INDICATION
     Dosage: ONE DOSE TAKEN EVERY DAY.
     Route: 048
     Dates: end: 20060115
  4. LIORESAL [Suspect]
     Indication: DRUG USE FOR UNKNOWN INDICATION
     Dosage: ONE DOSE, THREE TIMES DAILY.
     Route: 048
     Dates: end: 20060115
  5. IMUREL [Suspect]
     Indication: MULTIPLE SCLEROSIS
     Route: 048
     Dates: end: 20060102
  6. ANAFRANIL [Suspect]
     Indication: DRUG USE FOR UNKNOWN INDICATION
     Route: 048
     Dates: end: 20060115
  7. HEXAQUINE [Concomitant]
     Dosage: TWO DOSES PER DAY.
  8. PROPOFOL [Concomitant]
     Dosage: THREE DOSES PER DAY.
  9. DITROPAN [Concomitant]
     Dosage: TWO DOSES PER DAY.
  10. 1 CONCOMITANT DRUG [Concomitant]
     Dosage: DRUG REPORTED AS ^CANTALBUMINE^. THREE DOSES PER DAY.

REACTIONS (13)
  - ACUTE RESPIRATORY FAILURE [None]
  - ATELECTASIS [None]
  - DYSPNOEA [None]
  - GASTRIC CANCER [None]
  - GASTRIC ULCER [None]
  - GASTRITIS [None]
  - HYPERCAPNIA [None]
  - HYPOXIA [None]
  - LYMPHADENOPATHY [None]
  - LYMPHANGITIS [None]
  - MICROCYTIC ANAEMIA [None]
  - PLEURAL EFFUSION [None]
  - SIGNET-RING CELL CARCINOMA [None]
